FAERS Safety Report 5481982-6 (Version None)
Quarter: 2007Q4

REPORT INFORMATION
  Report Type: 
  Country: None (occurrence: None)
  Receive Date: 20071005
  Receipt Date: 20070925
  Transmission Date: 20080405
  Serious: Yes (Death, Hospitalization)
  Sender: FDA-Public Use
  Company Number: 2006US001323

PATIENT
  Age: 43 Year
  Sex: Male

DRUGS (4)
  1. PROGRAF [Suspect]
     Indication: KIDNEY TRANSPLANT REJECTION
     Dosage: 1 MG, BID, ORAL; 2 MG, BID,
     Dates: start: 20050824, end: 20060101
  2. PROGRAF [Suspect]
     Indication: KIDNEY TRANSPLANT REJECTION
     Dosage: 1 MG, BID, ORAL; 2 MG, BID,
     Dates: start: 20060824
  3. MYCOPHENOLATE MOFETIL [Suspect]
     Indication: KIDNEY TRANSPLANT REJECTION
     Dosage: 1000 MG, BID, ORAL
     Route: 048
     Dates: start: 20050810, end: 20060101
  4. PREDNISONE TAB [Suspect]
     Indication: KIDNEY TRANSPLANT REJECTION
     Dosage: 80 MG, UID/QD, ORAL
     Route: 048
     Dates: start: 20050813, end: 20060101

REACTIONS (6)
  - DIABETES MELLITUS [None]
  - HAEMATURIA [None]
  - LOSS OF CONSCIOUSNESS [None]
  - PULMONARY EMBOLISM [None]
  - RENAL FAILURE CHRONIC [None]
  - RESUSCITATION [None]
